FAERS Safety Report 19999093 (Version 1)
Quarter: 2021Q4

REPORT INFORMATION
  Report Type: Spontaneous
  Country: EC (occurrence: EC)
  Receive Date: 20211026
  Receipt Date: 20211026
  Transmission Date: 20220303
  Serious: Yes (Other)
  Sender: FDA-Public Use
  Company Number: EC-SCALL-2021-EC-000002

PATIENT
  Age: 68 Year
  Sex: Male

DRUGS (2)
  1. DUTASTERIDE\TAMSULOSIN HYDROCHLORIDE [Suspect]
     Active Substance: DUTASTERIDE\TAMSULOSIN HYDROCHLORIDE
     Indication: Benign prostatic hyperplasia
     Dosage: 1 DF, QD, 0.5MG/0.4MG, 1 CAPSULE AT NIGHT
     Route: 048
     Dates: start: 202107
  2. CIALIS [Suspect]
     Active Substance: TADALAFIL

REACTIONS (4)
  - Foreign body in throat [Recovered/Resolved]
  - Sensation of foreign body [Recovered/Resolved]
  - Burning sensation [Recovered/Resolved]
  - Dysgeusia [Recovered/Resolved]

NARRATIVE: CASE EVENT DATE: 20211011
